FAERS Safety Report 11669635 (Version 1)
Quarter: 2015Q4

REPORT INFORMATION
  Report Type: Report from Study
  Country: AR (occurrence: AR)
  Receive Date: 20151027
  Receipt Date: 20151027
  Transmission Date: 20160304
  Serious: Yes (Life-Threatening, Other)
  Sender: FDA-Public Use
  Company Number: PHHY2015AR123822

PATIENT
  Sex: Male

DRUGS (1)
  1. EXFORGE [Suspect]
     Active Substance: AMLODIPINE BESYLATE\VALSARTAN
     Indication: HYPERTENSION
     Dosage: 1 DF, QD (80/5, UNITS NOT PROVIDED)
     Route: 065

REACTIONS (10)
  - Cerebrovascular accident [Recovered/Resolved]
  - Renal failure [Recovered/Resolved]
  - Peritonitis [Recovered/Resolved]
  - Blood pressure fluctuation [Unknown]
  - Pulmonary thrombosis [Recovered/Resolved]
  - Apparent death [Unknown]
  - Blood pressure increased [Unknown]
  - Feeling abnormal [Recovered/Resolved]
  - Cardiac failure [Unknown]
  - General physical health deterioration [Recovered/Resolved]
